FAERS Safety Report 6116043-6 (Version None)
Quarter: 2009Q1

REPORT INFORMATION
  Report Type: 
  Country: None (occurrence: None)
  Receive Date: 20090314
  Receipt Date: 20081212
  Transmission Date: 20090719
  Serious: No
  Sender: FDA-Public Use
  Company Number: US-ABBOTT-08P-163-0492583-00

PATIENT
  Sex: Male
  Weight: 127.12 kg

DRUGS (4)
  1. HUMIRA [Suspect]
     Indication: ANKYLOSING SPONDYLITIS
     Dosage: LOADING DOSE, ONE PEN ONLY
     Route: 058
     Dates: start: 20081125
  2. HUMIRA [Suspect]
  3. PERCOCET [Concomitant]
     Indication: BREAKTHROUGH PAIN
     Dosage: 10/325, 3 IN 1 DAY
     Route: 048
  4. METHADONE HCL [Concomitant]
     Indication: PAIN

REACTIONS (2)
  - CONTUSION [None]
  - INJECTION SITE PAIN [None]
